FAERS Safety Report 4357256-3 (Version None)
Quarter: 2004Q2

REPORT INFORMATION
  Report Type: 
  Country: None (occurrence: None)
  Receive Date: 20040506
  Receipt Date: 20040423
  Transmission Date: 20050107
  Serious: Yes (Other)
  Sender: FDA-Public Use
  Company Number: US-JNJFOC-20040405588

PATIENT
  Age: 17 Year
  Sex: Female

DRUGS (1)
  1. TOPAMAX [Suspect]
     Indication: DRUG USE FOR UNKNOWN INDICATION
     Dosage: 500 MG, ORAL
     Route: 048

REACTIONS (6)
  - CONVULSION [None]
  - HALLUCINATION [None]
  - HEAD BANGING [None]
  - MEDICATION ERROR [None]
  - OVERDOSE [None]
  - SELF-MEDICATION [None]
